FAERS Safety Report 8118222-5 (Version None)
Quarter: 2011Q4

REPORT INFORMATION
  Report Type: 
  Country: None (occurrence: None)
  Receive Date: 20111227
  Receipt Date: 20111010
  Transmission Date: 20120403
  Serious: No
  Sender: FDA-Public Use
  Company Number: PHEH2011US06638

PATIENT
  Age: 50 Year
  Sex: Female
  Weight: 54.4 kg

DRUGS (8)
  1. GILENYA [Suspect]
     Dosage: 0.5 MG, QD, ORAL
     Route: 048
  2. SUDAFED (PSEUDOEPHEDRINE HYDROCHLORIDE) TABLET, 120 MG [Concomitant]
  3. MULTIVITAMINS (ASCORBIC ACID, ERGOCALCIFEROL, FOLIC ACID, NICOTINAMIDE [Concomitant]
  4. ALEVE (NAPROXEN SODIUM) CAPSULE, 220 MG [Concomitant]
  5. TIARAMIDE HYDROCHLORIDE (TIARAMIDE HYDROCHLORIDE) TABLET, 50 MG [Concomitant]
  6. SYNTHROID (LEVOTHYROXINE SODIUM) TABLET, 100 UG [Concomitant]
  7. CYMBALTA (DULOXETINE HYDROCHLORIDE) CAPSULE, 20 MG [Concomitant]
  8. VITAMIN D (ERGOCALCIFEROL) CAPSULE [Concomitant]

REACTIONS (1)
  - AMNESIA [None]
